FAERS Safety Report 19195369 (Version 1)
Quarter: 2021Q2

REPORT INFORMATION
  Report Type: Spontaneous
  Country: US (occurrence: US)
  Receive Date: 20210429
  Receipt Date: 20210429
  Transmission Date: 20210717
  Serious: Yes (Hospitalization)
  Sender: FDA-Public Use
  Company Number: None

PATIENT
  Age: 56 Year
  Sex: Female

DRUGS (5)
  1. ALPRAZOLAM. [Concomitant]
     Active Substance: ALPRAZOLAM
  2. VENLAFAXINE ER [Concomitant]
     Active Substance: VENLAFAXINE HYDROCHLORIDE
  3. ENBREL [Suspect]
     Active Substance: ETANERCEPT
     Indication: RHEUMATOID ARTHRITIS
     Route: 058
     Dates: start: 20201015
  4. EMGALITY [Concomitant]
     Active Substance: GALCANEZUMAB-GNLM
  5. AJOVY [Concomitant]
     Active Substance: FREMANEZUMAB-VFRM

REACTIONS (4)
  - Urinary tract infection [None]
  - Infection [None]
  - Pneumonia [None]
  - COVID-19 immunisation [None]

NARRATIVE: CASE EVENT DATE: 20210401
